FAERS Safety Report 12593679 (Version 1)
Quarter: 2016Q3

REPORT INFORMATION
  Report Type: Spontaneous
  Country: US (occurrence: US)
  Receive Date: 20160726
  Receipt Date: 20160726
  Transmission Date: 20161109
  Serious: No
  Sender: FDA-Public Use
  Company Number: US-ABBVIE-15P-163-1455839-00

PATIENT
  Age: 31 Year
  Sex: Female

DRUGS (1)
  1. SYNTHROID [Suspect]
     Active Substance: LEVOTHYROXINE SODIUM
     Indication: HYPOTHYROIDISM
     Route: 065

REACTIONS (20)
  - Neuropathy peripheral [Unknown]
  - Myalgia [Unknown]
  - Depression [Unknown]
  - Dry skin [Unknown]
  - Weight increased [Unknown]
  - Menstruation irregular [Unknown]
  - Fatigue [Unknown]
  - Joint swelling [Unknown]
  - Memory impairment [Unknown]
  - Musculoskeletal stiffness [Unknown]
  - Anxiety [Unknown]
  - Feeling abnormal [Unknown]
  - Constipation [Unknown]
  - Swelling face [Unknown]
  - Muscular weakness [Unknown]
  - Peripheral coldness [Unknown]
  - Alopecia [Unknown]
  - Disturbance in attention [Unknown]
  - Joint stiffness [Unknown]
  - Arthralgia [Unknown]
